FAERS Safety Report 9770162 (Version 2)
Quarter: 2014Q1

REPORT INFORMATION
  Report Type: Report from Study
  Country: DE (occurrence: DE)
  Receive Date: 20131218
  Receipt Date: 20140124
  Transmission Date: 20141002
  Serious: Yes (Hospitalization, Other)
  Sender: FDA-Public Use
  Company Number: DE-ABBVIE-13P-062-1180959-00

PATIENT
  Age: 19 Year
  Sex: Male
  Weight: 78 kg

DRUGS (5)
  1. HUMIRA [Suspect]
     Indication: COLITIS ULCERATIVE
     Route: 058
     Dates: start: 20130729, end: 20131008
  2. METHOTREXATE [Suspect]
     Indication: COLITIS ULCERATIVE
  3. PREDNISOLONE [Suspect]
     Indication: COLITIS ULCERATIVE
  4. CORTISONE [Concomitant]
     Indication: COLITIS ULCERATIVE
  5. PENTASA [Concomitant]
     Indication: COLITIS ULCERATIVE

REACTIONS (2)
  - Myocarditis [Recovered/Resolved]
  - Pericardial effusion [Unknown]
